FAERS Safety Report 16221435 (Version 1)
Quarter: 2019Q2

REPORT INFORMATION
  Report Type: Spontaneous
  Country: FR (occurrence: FR)
  Receive Date: 20190422
  Receipt Date: 20190422
  Transmission Date: 20190711
  Serious: Yes (Hospitalization)
  Sender: FDA-Public Use
  Company Number: FR-ASTRAZENECA-2019SE57476

PATIENT
  Age: 55 Year
  Sex: Female
  Weight: 86 kg

DRUGS (1)
  1. INEXIUM [Suspect]
     Active Substance: ESOMEPRAZOLE
     Indication: PROPHYLAXIS
     Dosage: 40.0MG UNKNOWN
     Route: 048
     Dates: end: 20190225

REACTIONS (3)
  - Vertigo [Recovered/Resolved]
  - Nystagmus [Recovered/Resolved]
  - Hypomagnesaemia [Not Recovered/Not Resolved]

NARRATIVE: CASE EVENT DATE: 20190114
